FAERS Safety Report 24352747 (Version 1)
Quarter: 2024Q3

REPORT INFORMATION
  Report Type: Spontaneous
  Country: JP (occurrence: JP)
  Receive Date: 20240923
  Receipt Date: 20240923
  Transmission Date: 20241016
  Serious: No
  Sender: ROCHE
  Company Number: JP-CHUGAI-2023031308

PATIENT
  Age: 67 Year
  Sex: Male
  Weight: 62.0 kg

DRUGS (3)
  1. TRASTUZUMAB [Suspect]
     Active Substance: TRASTUZUMAB
     Indication: Gastric cancer
     Route: 065
  2. CAPECITABINE [Concomitant]
     Active Substance: CAPECITABINE
     Indication: Gastric cancer
     Dosage: UNK
     Route: 048
  3. CISPLATIN [Concomitant]
     Active Substance: CISPLATIN

REACTIONS (2)
  - Off label use [Unknown]
  - No adverse event [Unknown]
